FAERS Safety Report 22636890 (Version 2)
Quarter: 2023Q4

REPORT INFORMATION
  Report Type: Spontaneous
  Country: JP (occurrence: JP)
  Receive Date: 20230626
  Receipt Date: 20231222
  Transmission Date: 20240109
  Serious: Yes (Other)
  Sender: FDA-Public Use
  Company Number: JP-TAKEDA-2023TJP008174AA

PATIENT
  Sex: Male

DRUGS (2)
  1. CABOMETYX [Suspect]
     Active Substance: CABOZANTINIB S-MALATE
     Indication: Hepatocellular carcinoma
     Dosage: 20 MG, QD
     Route: 048
     Dates: start: 20230505
  2. CABOMETYX [Suspect]
     Active Substance: CABOZANTINIB S-MALATE
     Dosage: 20 MG, QD
     Route: 048
     Dates: end: 20231130

REACTIONS (2)
  - Pancytopenia [Recovered/Resolved]
  - Metastases to bone [Unknown]

NARRATIVE: CASE EVENT DATE: 20230602
